FAERS Safety Report 9473731 (Version 2)
Quarter: 2013Q3

REPORT INFORMATION
  Report Type: Spontaneous
  Country: US (occurrence: US)
  Receive Date: 20130823
  Receipt Date: 20130823
  Transmission Date: 20140515
  Serious: Yes (Other)
  Sender: FDA-Public Use
  Company Number: US-BRISTOL-MYERS SQUIBB COMPANY-16938250

PATIENT
  Age: 51 Year
  Sex: Female

DRUGS (1)
  1. SPRYCEL (CML) TABS 50 MG [Suspect]
     Indication: CHRONIC MYELOID LEUKAEMIA
     Dosage: ABOUT 5 YEARS AGO
     Route: 048

REACTIONS (3)
  - Pneumonia [Unknown]
  - Weight increased [Unknown]
  - Joint swelling [Unknown]
